FAERS Safety Report 6069729-6 (Version None)
Quarter: 2009Q1

REPORT INFORMATION
  Report Type: 
  Country: None (occurrence: None)
  Receive Date: 20090209
  Receipt Date: 20090129
  Transmission Date: 20090719
  Serious: Yes (Hospitalization)
  Sender: FDA-Public Use
  Company Number: US-CELGENEUS-163-21880-08111472

PATIENT
  Sex: Male
  Weight: 99.6 kg

DRUGS (85)
  1. REVLIMID [Suspect]
     Dosage: 2.5MG DAILY FOR DAYS 1-7 FOLLOWED BY 5MG DAILY FOR DAYS 8-21 OF CYCLE 1
     Route: 048
     Dates: start: 20080715, end: 20080101
  2. REVLIMID [Suspect]
     Route: 048
     Dates: start: 20080821
  3. REVLIMID [Suspect]
     Route: 048
     Dates: start: 20080901, end: 20081101
  4. REVLIMID [Suspect]
     Route: 048
     Dates: start: 20081101, end: 20081122
  5. RITUXIMAB [Suspect]
     Route: 051
     Dates: start: 20080812
  6. ZOCOR [Concomitant]
     Route: 048
  7. ALLOPURINOL [Concomitant]
     Route: 048
     Dates: start: 20080712
  8. ASPIRIN [Concomitant]
     Indication: DRUG USE FOR UNKNOWN INDICATION
     Route: 048
  9. IBUPROFEN [Concomitant]
     Indication: ABDOMINAL PAIN
     Route: 048
     Dates: start: 20080722
  10. COLACE [Concomitant]
     Indication: CONSTIPATION
     Route: 048
     Dates: start: 20080722
  11. AMPHOTERICIN B [Concomitant]
     Indication: DRUG USE FOR UNKNOWN INDICATION
     Route: 065
     Dates: end: 20090122
  12. FLUCONAZOLE [Concomitant]
     Indication: DRUG USE FOR UNKNOWN INDICATION
     Route: 065
  13. FLUCONAZOLE [Concomitant]
  14. OXYGEN [Concomitant]
     Indication: DRUG USE FOR UNKNOWN INDICATION
     Dosage: LOW FLOW
     Route: 055
  15. NACL 9% [Concomitant]
     Indication: DRUG USE FOR UNKNOWN INDICATION
     Dosage: 250ML - 500ML
     Route: 051
     Dates: start: 20081126, end: 20081210
  16. NACL 9% [Concomitant]
     Route: 051
     Dates: start: 20081210
  17. NACL 9% [Concomitant]
     Dosage: 100ML- 50ML
     Route: 051
     Dates: start: 20081122, end: 20081204
  18. NACL 9% [Concomitant]
     Route: 051
     Dates: start: 20081123
  19. NACL 9% [Concomitant]
     Route: 051
     Dates: start: 20081201
  20. VANCOMYCIN [Concomitant]
     Indication: DRUG USE FOR UNKNOWN INDICATION
     Dosage: 1G - 1.25G
     Route: 065
     Dates: start: 20081127
  21. LACTATED RINGER'S [Concomitant]
     Indication: DRUG USE FOR UNKNOWN INDICATION
     Route: 051
     Dates: start: 20081125, end: 20081125
  22. MAGNESIUM SULFATE [Concomitant]
     Indication: DRUG USE FOR UNKNOWN INDICATION
     Route: 051
     Dates: start: 20081209, end: 20081209
  23. DEXTROSE 5% [Concomitant]
     Indication: DRUG USE FOR UNKNOWN INDICATION
     Route: 051
     Dates: start: 20081204
  24. DEXTROSE 5% [Concomitant]
     Dosage: 250 ML - 400 ML
     Route: 051
     Dates: start: 20081126
  25. DEXTROSE 5% [Concomitant]
     Route: 051
     Dates: start: 20081122
  26. DEXTROSE 5% [Concomitant]
     Route: 051
     Dates: start: 20081125
  27. PANTOPRAZOLE [Concomitant]
     Indication: DRUG USE FOR UNKNOWN INDICATION
     Route: 051
     Dates: start: 20081202
  28. PANTOPRAZOLE [Concomitant]
     Route: 048
     Dates: start: 20081203
  29. IMMUNE GLOBULIN NOS [Concomitant]
     Indication: DRUG USE FOR UNKNOWN INDICATION
     Route: 051
     Dates: start: 20081126, end: 20081202
  30. IMMUNE GLOBULIN NOS [Concomitant]
     Route: 051
     Dates: start: 20081202, end: 20081202
  31. SULFAMETHOXAZOLE AND TRIMETHOPRIM [Concomitant]
     Indication: DRUG USE FOR UNKNOWN INDICATION
     Route: 051
     Dates: start: 20081125
  32. SULFAMETHOXAZOLE AND TRIMETHOPRIM [Concomitant]
     Dosage: 160-800
     Route: 048
     Dates: start: 20081204
  33. MEROPENEM [Concomitant]
     Indication: DRUG USE FOR UNKNOWN INDICATION
     Route: 051
     Dates: start: 20081201
  34. IRON SUCROSE [Concomitant]
     Indication: DRUG USE FOR UNKNOWN INDICATION
     Route: 051
  35. DEXTROSE 5% [Concomitant]
     Indication: DRUG USE FOR UNKNOWN INDICATION
     Route: 051
     Dates: start: 20081126
  36. ABELCET [Concomitant]
     Indication: DRUG USE FOR UNKNOWN INDICATION
     Route: 050
  37. AZITHROMYCIN [Concomitant]
     Indication: DRUG USE FOR UNKNOWN INDICATION
     Route: 050
  38. LEVOFLOXACIN [Concomitant]
     Indication: DRUG USE FOR UNKNOWN INDICATION
     Route: 065
  39. CEFTRIAXONE [Concomitant]
     Indication: DRUG USE FOR UNKNOWN INDICATION
     Route: 065
  40. HUMALOG [Concomitant]
     Indication: DRUG USE FOR UNKNOWN INDICATION
     Dosage: SLIDING SCALE
     Route: 058
     Dates: start: 20081127
  41. INSULIN GLARGINE PEN [Concomitant]
     Indication: DRUG USE FOR UNKNOWN INDICATION
     Dosage: 4 - 14 UNITS
     Route: 058
     Dates: start: 20081201
  42. ACTIVASE [Concomitant]
     Indication: DRUG USE FOR UNKNOWN INDICATION
     Route: 050
     Dates: start: 20081206, end: 20081206
  43. SODIUM POLYSTYRENE SULFONATE [Concomitant]
     Indication: DRUG USE FOR UNKNOWN INDICATION
     Route: 048
     Dates: start: 20081204, end: 20081220
  44. SODIUM POLYSTYRENE SULFONATE [Concomitant]
     Route: 048
     Dates: start: 20081127, end: 20081203
  45. FUROSEMIDE [Concomitant]
     Indication: DRUG USE FOR UNKNOWN INDICATION
     Route: 051
     Dates: start: 20081126, end: 20081202
  46. FUROSEMIDE [Concomitant]
     Route: 051
     Dates: start: 20081128, end: 20081129
  47. FUROSEMIDE [Concomitant]
     Route: 051
     Dates: start: 20081127, end: 20081127
  48. MULTIPLE VITAMINS [Concomitant]
     Indication: DRUG USE FOR UNKNOWN INDICATION
     Route: 048
     Dates: start: 20081202
  49. FILGRASTIM [Concomitant]
     Indication: DRUG USE FOR UNKNOWN INDICATION
     Route: 058
     Dates: start: 20081126, end: 20081201
  50. EPOETIN ALFA [Concomitant]
     Indication: DRUG USE FOR UNKNOWN INDICATION
     Dosage: 1000 UNITS
     Route: 058
     Dates: start: 20081130, end: 20081201
  51. ALBUMIN 25% [Concomitant]
     Indication: DRUG USE FOR UNKNOWN INDICATION
     Route: 051
     Dates: start: 20081201, end: 20081201
  52. CALCIUM ACETATE [Concomitant]
     Indication: DRUG USE FOR UNKNOWN INDICATION
     Route: 048
     Dates: start: 20081130
  53. ENOXAPARIN SODIUM [Concomitant]
     Indication: DRUG USE FOR UNKNOWN INDICATION
     Route: 058
     Dates: start: 20081122
  54. PHYTONADIONE [Concomitant]
     Indication: DRUG USE FOR UNKNOWN INDICATION
     Route: 048
     Dates: start: 20081129, end: 20081129
  55. MEGESTROL ACETATE [Concomitant]
     Indication: DRUG USE FOR UNKNOWN INDICATION
     Route: 048
     Dates: start: 20081128
  56. POTASSIUM CHLORIDE [Concomitant]
     Indication: DRUG USE FOR UNKNOWN INDICATION
     Route: 048
     Dates: start: 20081127, end: 20081127
  57. FLUCYTOSINE [Concomitant]
     Indication: DRUG USE FOR UNKNOWN INDICATION
     Route: 048
     Dates: start: 20081126, end: 20081209
  58. ACETAMINOPHEN [Concomitant]
     Indication: DRUG USE FOR UNKNOWN INDICATION
     Route: 048
     Dates: start: 20081126, end: 20081126
  59. ACETAMINOPHEN [Concomitant]
     Route: 048
     Dates: start: 20081122
  60. ACETAMINOPHEN [Concomitant]
     Route: 048
     Dates: start: 20081122, end: 20081122
  61. DIPHENHYDRAMINE HCL [Concomitant]
     Indication: DRUG USE FOR UNKNOWN INDICATION
     Route: 051
     Dates: start: 20081126, end: 20081126
  62. DIPHENHYDRAMINE HCL [Concomitant]
     Route: 051
     Dates: start: 20081126, end: 20081126
  63. ALPRAZOLAM [Concomitant]
     Indication: DRUG USE FOR UNKNOWN INDICATION
     Route: 048
     Dates: start: 20081126
  64. DOCUSATE SODIUM [Concomitant]
     Indication: DRUG USE FOR UNKNOWN INDICATION
     Route: 048
     Dates: start: 20081122
  65. FERROUS SULFATE TAB [Concomitant]
     Indication: DRUG USE FOR UNKNOWN INDICATION
     Route: 048
     Dates: start: 20081124
  66. LINEZOLID [Concomitant]
     Indication: DRUG USE FOR UNKNOWN INDICATION
     Route: 048
     Dates: start: 20081123
  67. FENOFIBRATE [Concomitant]
     Indication: DRUG USE FOR UNKNOWN INDICATION
     Route: 048
     Dates: start: 20081122
  68. SIMVASTATIN [Concomitant]
     Indication: DRUG USE FOR UNKNOWN INDICATION
     Route: 048
     Dates: start: 20081122
  69. ACETAMINOPHEN AND HYDROCODONE BITARTRATE [Concomitant]
     Indication: DRUG USE FOR UNKNOWN INDICATION
     Dosage: 325-5
     Route: 048
     Dates: start: 20081122
  70. BISACODYL SUPPOSITORY [Concomitant]
     Indication: DRUG USE FOR UNKNOWN INDICATION
     Route: 054
     Dates: start: 20081122
  71. MAGNESIUM HYDROXIDE TAB [Concomitant]
     Indication: DRUG USE FOR UNKNOWN INDICATION
     Route: 048
     Dates: start: 20081122
  72. MORPHINE [Concomitant]
     Indication: DRUG USE FOR UNKNOWN INDICATION
     Route: 051
     Dates: start: 20081122
  73. MORPHINE [Concomitant]
     Route: 030
     Dates: start: 20081125, end: 20081125
  74. ONDANSETRON [Concomitant]
     Indication: DRUG USE FOR UNKNOWN INDICATION
     Route: 051
     Dates: start: 20081122
  75. PROCHLORPERAZINE [Concomitant]
     Indication: DRUG USE FOR UNKNOWN INDICATION
     Route: 051
     Dates: start: 20081122
  76. SALINE LOCK [Concomitant]
     Indication: DRUG USE FOR UNKNOWN INDICATION
     Route: 051
     Dates: start: 20081122
  77. TEMAZEPAM [Concomitant]
     Indication: DRUG USE FOR UNKNOWN INDICATION
     Route: 048
     Dates: start: 20081122
  78. OSELTAMIVIR [Concomitant]
     Indication: DRUG USE FOR UNKNOWN INDICATION
     Route: 048
     Dates: start: 20081122, end: 20081127
  79. ALBUTEROL/IPRATROPIUM NE [Concomitant]
     Indication: DRUG USE FOR UNKNOWN INDICATION
     Dosage: 0.5 UNIT DOSE
     Dates: start: 20081122, end: 20081127
  80. ALBUTEROL [Concomitant]
     Indication: DRUG USE FOR UNKNOWN INDICATION
     Dates: start: 20081128
  81. ALBUTEROL [Concomitant]
     Dates: start: 20081125
  82. ALBUTEROL [Concomitant]
     Dates: start: 20081125
  83. IPRATROPIUM BROMIDE [Concomitant]
     Indication: DRUG USE FOR UNKNOWN INDICATION
     Dates: start: 20081122
  84. LEVALBUTEROL HCL [Concomitant]
     Indication: DRUG USE FOR UNKNOWN INDICATION
     Dates: start: 20081122
  85. MIDAZOLAM [Concomitant]
     Indication: DRUG USE FOR UNKNOWN INDICATION
     Route: 051
     Dates: start: 20081125, end: 20081125

REACTIONS (3)
  - PNEUMOCYSTIS JIROVECI PNEUMONIA [None]
  - PNEUMONIA [None]
  - PNEUMONIA CRYPTOCOCCAL [None]
